FAERS Safety Report 7258056-7 (Version None)
Quarter: 2011Q1

REPORT INFORMATION
  Report Type: 
  Country: None (occurrence: None)
  Receive Date: 20110129
  Receipt Date: 20100617
  Transmission Date: 20110831
  Serious: No
  Sender: FDA-Public Use
  Company Number: US-ABBOTT-10P-163-0651865-00

PATIENT
  Sex: Female

DRUGS (5)
  1. PRILOSEC OTC [Concomitant]
     Indication: FLATULENCE
  2. PRILOSEC OTC [Concomitant]
     Indication: DYSPEPSIA
  3. BENICAR [Concomitant]
     Indication: BLOOD PRESSURE
     Dosage: IN THE MORNING
  4. HUMIRA [Suspect]
     Indication: RHEUMATOID ARTHRITIS
     Dates: start: 20100322
  5. HYROCODONE/APAP [Concomitant]
     Indication: PRODUCT USED FOR UNKNOWN INDICATION
     Dosage: 7.5-75 MG ONE AS NEEDED 4 TIMES A DAY

REACTIONS (4)
  - JOINT SWELLING [None]
  - WEIGHT INCREASED [None]
  - BLOOD PRESSURE INCREASED [None]
  - HEADACHE [None]
